FAERS Safety Report 21284683 (Version 1)
Quarter: 2022Q3

REPORT INFORMATION
  Report Type: Spontaneous
  Country: US (occurrence: US)
  Receive Date: 20220902
  Receipt Date: 20220902
  Transmission Date: 20221027
  Serious: No
  Sender: FDA-Public Use
  Company Number: ENDG21-06783

PATIENT
  Sex: Female
  Weight: 60.33 kg

DRUGS (3)
  1. PREDNISONE [Suspect]
     Active Substance: PREDNISONE
     Indication: Inflammation
     Dosage: UNK UNKNOWN, UNKNOWN
     Route: 065
     Dates: start: 20210922
  2. PREDNISONE [Suspect]
     Active Substance: PREDNISONE
     Dosage: UNK UNKNOWN, UNKNOWN
     Route: 065
     Dates: start: 202107, end: 202107
  3. CELEBREX [Concomitant]
     Active Substance: CELECOXIB
     Indication: Inflammation
     Dosage: UNK UNKNOWN, UNKNOWN
     Route: 065
     Dates: start: 2021

REACTIONS (1)
  - Drug ineffective [Unknown]
